FAERS Safety Report 5839951-X (Version None)
Quarter: 2008Q3

REPORT INFORMATION
  Report Type: 
  Country: None (occurrence: None)
  Receive Date: 20080811
  Receipt Date: 20080731
  Transmission Date: 20090109
  Serious: Yes (Hospitalization)
  Sender: FDA-Public Use
  Company Number: ES-SANOFI-SYNTHELABO-A01200809070

PATIENT
  Age: 73 Year
  Sex: Female

DRUGS (6)
  1. ORFIDAL [Concomitant]
     Route: 048
     Dates: start: 20080404
  2. DACORTIN [Concomitant]
     Route: 048
     Dates: start: 20080404
  3. TRAMADOL HCL [Concomitant]
     Route: 048
     Dates: start: 20080404
  4. PANTOPRAZOLE SODIUM [Concomitant]
     Route: 065
     Dates: start: 20080404
  5. DANATROL [Suspect]
     Route: 048
     Dates: start: 20080404, end: 20080505
  6. METFORMIN HCL [Concomitant]
     Route: 048
     Dates: start: 20080404

REACTIONS (2)
  - ATRIAL FIBRILLATION [None]
  - CYTOLYTIC HEPATITIS [None]
